FAERS Safety Report 9174876 (Version 1)
Quarter: 2013Q1

REPORT INFORMATION
  Report Type: Spontaneous
  Country: IT (occurrence: None)
  Receive Date: 20130318
  Receipt Date: 20130318
  Transmission Date: 20140127
  Serious: Yes (Other)
  Sender: FDA-Public Use
  Company Number: 2013-03932

PATIENT
  Age: 10 Year
  Sex: Male

DRUGS (1)
  1. CARBAMAZEPINE [Suspect]
     Indication: IDIOPATHIC GENERALISED EPILEPSY
     Dosage: 200  MG  DAILY,  INCREASED  UP  TO  800  MG  DAILY  AFTER  THREE  MONTHS,  ?UNKNOWN

REACTIONS (3)
  - Myoclonus [None]
  - Dyskinesia [None]
  - Tic [None]
